FAERS Safety Report 22332879 (Version 2)
Quarter: 2023Q2

REPORT INFORMATION
  Report Type: Spontaneous
  Country: IL (occurrence: IL)
  Receive Date: 20230517
  Receipt Date: 20230606
  Transmission Date: 20230721
  Serious: Yes (Disabling)
  Sender: FDA-Public Use
  Company Number: IL-VER-202300003

PATIENT
  Age: 44 Year
  Sex: Female

DRUGS (1)
  1. TRIPTORELIN PAMOATE [Suspect]
     Active Substance: TRIPTORELIN PAMOATE
     Indication: Product used for unknown indication
     Route: 065
     Dates: start: 20230323

REACTIONS (5)
  - Anxiety [Unknown]
  - Bone pain [Unknown]
  - Pruritus [Unknown]
  - Urethral pain [Unknown]
  - Rash [Unknown]
